FAERS Safety Report 6628902-6 (Version None)
Quarter: 2010Q1

REPORT INFORMATION
  Report Type: 
  Country: None (occurrence: None)
  Receive Date: 20100311
  Receipt Date: 20100303
  Transmission Date: 20100710
  Serious: Yes (Death, Hospitalization)
  Sender: FDA-Public Use
  Company Number: US-AMGEN-QUU393870

PATIENT
  Sex: Female
  Weight: 68.3 kg

DRUGS (15)
  1. NPLATE [Suspect]
     Indication: IDIOPATHIC THROMBOCYTOPENIC PURPURA
     Dates: start: 20100204, end: 20100211
  2. CORTICOSTEROIDS [Concomitant]
  3. RITUXIMAB [Concomitant]
  4. CYCLOPHOSPHAMIDE [Concomitant]
  5. IMMU-G [Concomitant]
  6. ZOLOFT [Concomitant]
     Route: 048
  7. COLACE [Concomitant]
     Route: 048
  8. ACYCLOVIR [Concomitant]
     Route: 048
  9. SIMVASTATIN [Concomitant]
     Route: 048
  10. MULTI-VITAMINS [Concomitant]
  11. CALCIUM [Concomitant]
  12. ESTER-C [Concomitant]
  13. FLAX SEED OIL [Concomitant]
  14. ALLOPURINOL [Concomitant]
  15. BACTRIM [Concomitant]

REACTIONS (2)
  - CHRONIC LYMPHOCYTIC LEUKAEMIA [None]
  - IDIOPATHIC THROMBOCYTOPENIC PURPURA [None]
